FAERS Safety Report 18332373 (Version 1)
Quarter: 2020Q3

REPORT INFORMATION
  Report Type: Spontaneous
  Country: US (occurrence: US)
  Receive Date: 20200930
  Receipt Date: 20200930
  Transmission Date: 20201103
  Serious: Yes (Death, Hospitalization, Other)
  Sender: FDA-Public Use
  Company Number: US-PURDUE-USA-2020-0168420

PATIENT
  Sex: Male

DRUGS (8)
  1. OXYCONTIN [Suspect]
     Active Substance: OXYCODONE HYDROCHLORIDE
     Dosage: 10 MG, UNK
     Route: 048
  2. OXYCONTIN [Suspect]
     Active Substance: OXYCODONE HYDROCHLORIDE
     Indication: ARTHRALGIA
     Dosage: 5 MG, UNK
     Route: 048
  3. GABAPENTIN. [Concomitant]
     Active Substance: GABAPENTIN
     Indication: NEUROPATHY PERIPHERAL
     Dosage: 600 MG, HS
     Route: 048
  4. OXYCONTIN [Suspect]
     Active Substance: OXYCODONE HYDROCHLORIDE
     Dosage: 45 MG, DAILY
     Route: 048
  5. DICLOFENAC [Concomitant]
     Active Substance: DICLOFENAC
     Indication: ARTHRITIS
     Dosage: 75 MG, BID
     Route: 048
  6. NADOLOL. [Concomitant]
     Active Substance: NADOLOL
     Indication: VARICES OESOPHAGEAL
     Dosage: 40 MG, HS
     Route: 048
  7. OXYCODONE HCL TABLETS (RHODES 91?490) [Suspect]
     Active Substance: OXYCODONE HYDROCHLORIDE
     Indication: ARTHRALGIA
     Dosage: 7.5 MG, 8 OR 10 TABLETS
     Route: 048
  8. ASA [Concomitant]
     Active Substance: ASPIRIN
     Indication: PROPHYLAXIS
     Dosage: 325 MG, DAILY
     Route: 048

REACTIONS (34)
  - Suicidal ideation [Unknown]
  - Pancreatectomy [Unknown]
  - Phaeochromocytoma [Unknown]
  - Diarrhoea [Unknown]
  - Drug withdrawal syndrome [Unknown]
  - Restlessness [Unknown]
  - Myalgia [Unknown]
  - Aortic aneurysm [Unknown]
  - Drug dependence [Unknown]
  - Cognitive disorder [Unknown]
  - Headache [Unknown]
  - Impaired work ability [Unknown]
  - Illness [Unknown]
  - Drug abuse [Unknown]
  - Loss of personal independence in daily activities [Unknown]
  - Depression [Unknown]
  - Drug tolerance [Unknown]
  - Cold sweat [Unknown]
  - Respiratory failure [Fatal]
  - Substance use disorder [Unknown]
  - Rectal abscess [Unknown]
  - Antisocial behaviour [Unknown]
  - Crying [Unknown]
  - Weight increased [Unknown]
  - Overdose [Unknown]
  - Septic shock [Fatal]
  - Upper limb fracture [Unknown]
  - Seizure [Unknown]
  - Vomiting [Unknown]
  - Confusional state [Unknown]
  - Unresponsive to stimuli [Unknown]
  - Fall [Unknown]
  - Gastrointestinal disorder [Unknown]
  - Pyrexia [Unknown]

NARRATIVE: CASE EVENT DATE: 2009
